FAERS Safety Report 16780368 (Version 3)
Quarter: 2019Q4

REPORT INFORMATION
  Report Type: Report from Study
  Country: US (occurrence: US)
  Receive Date: 20190906
  Receipt Date: 20191022
  Transmission Date: 20200122
  Serious: Yes (Hospitalization, Other)
  Sender: FDA-Public Use
  Company Number: US-JNJFOC-20190441528

PATIENT
  Age: 72 Year
  Sex: Male

DRUGS (22)
  1. AMLODIPINE [Concomitant]
     Active Substance: AMLODIPINE BESYLATE
  2. IMBRUVICA [Suspect]
     Active Substance: IBRUTINIB
     Route: 048
     Dates: start: 20190702
  3. ASPIRIN. [Concomitant]
     Active Substance: ASPIRIN
  4. FISH OIL [Concomitant]
     Active Substance: FISH OIL
  5. LISINOPRIL. [Concomitant]
     Active Substance: LISINOPRIL
  6. IMBRUVICA [Suspect]
     Active Substance: IBRUTINIB
     Indication: NON-HODGKIN^S LYMPHOMA
     Dosage: 560 MG, QD
     Route: 048
     Dates: start: 20180731, end: 20190701
  7. TESTOSTERONE. [Concomitant]
     Active Substance: TESTOSTERONE
  8. CITALOPRAM [Concomitant]
     Active Substance: CITALOPRAM HYDROBROMIDE
  9. IMBRUVICA [Suspect]
     Active Substance: IBRUTINIB
     Indication: DIABETIC HYPERGLYCAEMIC COMA
     Dosage: 420 MG, QD
     Route: 048
     Dates: start: 20190820
  10. DEFLAZACORT [Concomitant]
     Active Substance: DEFLAZACORT
  11. VITAMIN D3 [Concomitant]
     Active Substance: CHOLECALCIFEROL
  12. VIAGRA [Concomitant]
     Active Substance: SILDENAFIL CITRATE
  13. IMBRUVICA [Suspect]
     Active Substance: IBRUTINIB
     Dosage: 560 MG, QD
     Route: 048
     Dates: start: 20180801
  14. MULTIVITAMINS [Concomitant]
     Active Substance: VITAMINS
  15. GLUTAMINE [Concomitant]
     Active Substance: GLUTAMINE
  16. METFORMIN [Concomitant]
     Active Substance: METFORMIN HYDROCHLORIDE
  17. L-GLUTAMINE                        /00503401/ [Concomitant]
     Active Substance: GLUTAMINE
  18. IMBRUVICA [Suspect]
     Active Substance: IBRUTINIB
     Indication: EXTRANODAL MARGINAL ZONE B-CELL LYMPHOMA (MALT TYPE)
     Dosage: 420 MG, QD
     Route: 048
     Dates: start: 201906
  19. FOLIC ACID. [Concomitant]
     Active Substance: FOLIC ACID
  20. CRESTOR [Concomitant]
     Active Substance: ROSUVASTATIN CALCIUM
  21. GLIMEPIRIDE. [Concomitant]
     Active Substance: GLIMEPIRIDE
  22. CHLORTHALIDONE. [Concomitant]
     Active Substance: CHLORTHALIDONE

REACTIONS (8)
  - Procedural pain [Unknown]
  - Atrial fibrillation [Not Recovered/Not Resolved]
  - Syncope [Recovering/Resolving]
  - Off label use [Unknown]
  - Blood pressure abnormal [Unknown]
  - Hypoglycaemia [Unknown]
  - Loss of consciousness [Unknown]
  - Product use in unapproved indication [Unknown]

NARRATIVE: CASE EVENT DATE: 20180731
